FAERS Safety Report 9855898 (Version 1)
Quarter: 2013Q4

REPORT INFORMATION
  Report Type: Spontaneous
  Country: US (occurrence: None)
  Receive Date: 20131226
  Receipt Date: 20131226
  Transmission Date: 20140711
  Serious: No
  Sender: FDA-Public Use
  Company Number: PHEH2013US014369

PATIENT
  Sex: Female

DRUGS (2)
  1. GILENYA (FINGOLIMOD) CAPSULE, 0.5MG [Suspect]
     Route: 048
  2. ANTIBIOTICS (NO INGREDIENTS/SUBSTANCES) [Concomitant]

REACTIONS (4)
  - Red blood cell sedimentation rate increased [None]
  - Neutrophil count increased [None]
  - Pyrexia [None]
  - Arthralgia [None]
